FAERS Safety Report 8504527-2 (Version None)
Quarter: 2012Q3

REPORT INFORMATION
  Report Type: 
  Country: None (occurrence: None)
  Receive Date: 20120711
  Receipt Date: 20120702
  Transmission Date: 20120928
  Serious: Yes (Life-Threatening, Hospitalization, Disabling)
  Sender: FDA-Public Use
  Company Number: US-009507513-1207USA000960

PATIENT

DRUGS (3)
  1. ZOCOR [Suspect]
     Indication: PRODUCT USED FOR UNKNOWN INDICATION
     Dosage: 40 MG, QD
     Route: 048
     Dates: start: 20100101, end: 20100601
  2. CYCLOSPORINE [Interacting]
     Indication: TRANSPLANT REJECTION
     Dosage: UNK
     Dates: start: 19910501
  3. ZOCOR [Interacting]
     Dosage: 80 UNK, UNK
     Route: 048
     Dates: start: 20100601

REACTIONS (5)
  - DRUG INTERACTION [None]
  - RENAL IMPAIRMENT [None]
  - CORONARY ARTERY OCCLUSION [None]
  - RHABDOMYOLYSIS [None]
  - BACK PAIN [None]
